FAERS Safety Report 11613718 (Version 1)
Quarter: 2015Q4

REPORT INFORMATION
  Report Type: Spontaneous
  Country: DE (occurrence: DE)
  Receive Date: 20151008
  Receipt Date: 20151008
  Transmission Date: 20160304
  Serious: Yes (Other)
  Sender: FDA-Public Use
  Company Number: PHHY2015DE121850

PATIENT
  Age: 54 Year
  Sex: Female

DRUGS (2)
  1. LEPONEX [Suspect]
     Active Substance: CLOZAPINE
     Indication: PRODUCT USED FOR UNKNOWN INDICATION
     Route: 065
  2. ULTRACAIN [Suspect]
     Active Substance: ARTICAINE HYDROCHLORIDE
     Indication: ANAESTHESIA
     Dosage: UNK
     Route: 065
     Dates: start: 20151005

REACTIONS (2)
  - Mental impairment [Recovering/Resolving]
  - Gait disturbance [Recovering/Resolving]

NARRATIVE: CASE EVENT DATE: 20151005
